FAERS Safety Report 6307491-X (Version None)
Quarter: 2009Q3

REPORT INFORMATION
  Report Type: 
  Country: None (occurrence: None)
  Receive Date: 20090813
  Receipt Date: 20090807
  Transmission Date: 20100115
  Serious: Yes (Other)
  Sender: FDA-Public Use
  Company Number: GB-BRISTOL-MYERS SQUIBB COMPANY-14715783

PATIENT
  Age: 68 Year
  Sex: Male

DRUGS (12)
  1. SPRYCEL [Suspect]
     Indication: CHRONIC MYELOID LEUKAEMIA
     Route: 048
     Dates: start: 20080415
  2. LOSARTAN [Concomitant]
     Route: 048
     Dates: start: 20090519
  3. ASPIRIN [Concomitant]
     Indication: MYOCARDIAL ISCHAEMIA
     Route: 048
  4. ASPIRIN [Concomitant]
     Indication: STENT PLACEMENT
     Route: 048
  5. CLOPIDOGREL BISULFATE [Concomitant]
     Indication: MYOCARDIAL ISCHAEMIA
     Route: 048
  6. CLOPIDOGREL BISULFATE [Concomitant]
     Indication: STENT PLACEMENT
     Route: 048
  7. LANSOPRAZOLE [Concomitant]
     Indication: MYOCARDIAL ISCHAEMIA
     Route: 048
  8. LANSOPRAZOLE [Concomitant]
     Indication: STENT PLACEMENT
     Route: 048
  9. FUROSEMIDE [Concomitant]
     Indication: MYOCARDIAL ISCHAEMIA
     Route: 048
  10. FUROSEMIDE [Concomitant]
     Indication: STENT PLACEMENT
     Route: 048
  11. SIMVASTATIN [Concomitant]
     Indication: MYOCARDIAL ISCHAEMIA
     Route: 048
  12. SIMVASTATIN [Concomitant]
     Indication: STENT PLACEMENT
     Route: 048

REACTIONS (2)
  - ABDOMINAL DISCOMFORT [None]
  - LYMPHOCYTOSIS [None]
